FAERS Safety Report 6004016-3 (Version None)
Quarter: 2008Q4

REPORT INFORMATION
  Report Type: 
  Country: None (occurrence: None)
  Receive Date: 20081212
  Receipt Date: 20081204
  Transmission Date: 20090506
  Serious: Yes (Other)
  Sender: FDA-Public Use
  Company Number: 2008SP024767

PATIENT
  Age: 88 Year
  Sex: Male

DRUGS (5)
  1. DIAFUSOR (GLYCERYL TRINITRATE) (GLYCERYL TRINITRATE) [Suspect]
     Indication: ANGINA PECTORIS
     Dosage: 10 MG; QD; CUT
     Route: 003
  2. SERECOR (HYDROQUINIDINE HYDROCHLORIDE) [Suspect]
     Indication: ATRIAL FIBRILLATION
     Dates: start: 19890101
  3. TENORMIN [Suspect]
     Indication: ESSENTIAL HYPERTENSION
  4. PREVISCAN (FLUINDIONE) [Suspect]
     Indication: DISEASE RECURRENCE
  5. PREVISCAN (FLUINDIONE) [Suspect]
     Indication: EMBOLISM

REACTIONS (6)
  - GAMMA-GLUTAMYLTRANSFERASE INCREASED [None]
  - GINGIVAL BLEEDING [None]
  - IRON BINDING CAPACITY TOTAL DECREASED [None]
  - NORMOCHROMIC NORMOCYTIC ANAEMIA [None]
  - PURPURA [None]
  - THROMBOCYTOPENIA [None]
